FAERS Safety Report 9641744 (Version 2)
Quarter: 2014Q2

REPORT INFORMATION
  Report Type: Report from Study
  Country: US (occurrence: US)
  Receive Date: 20131023
  Receipt Date: 20140616
  Transmission Date: 20141212
  Serious: Yes (Hospitalization)
  Sender: FDA-Public Use
  Company Number: US-ROCHE-1291588

PATIENT
  Age: 80 Year
  Sex: Female

DRUGS (1)
  1. CELLCEPT [Suspect]
     Indication: MYASTHENIA GRAVIS
     Route: 048

REACTIONS (3)
  - Hip arthroplasty [Unknown]
  - Bone disorder [Unknown]
  - Laceration [Unknown]
